FAERS Safety Report 5151506-1 (Version None)
Quarter: 2006Q4

REPORT INFORMATION
  Report Type: 
  Country: None (occurrence: None)
  Receive Date: 20061114
  Receipt Date: 20061114
  Transmission Date: 20070319
  Serious: Yes (Other)
  Sender: FDA-Public Use
  Company Number: None

PATIENT
  Age: 49 Year
  Sex: Male
  Weight: 99.7913 kg

DRUGS (1)
  1. EQUALINE PAIN RELIEF    500 MG CAPLETS   EQUALINE- DISTRIBUTED BY [Suspect]
     Indication: PAIN IN EXTREMITY
     Dosage: 2 PILLS  AS NEEDED  PO
     Route: 048
     Dates: start: 20060801, end: 20061031

REACTIONS (4)
  - BLOOD IRON DECREASED [None]
  - FATIGUE [None]
  - HIATUS HERNIA [None]
  - ULCER [None]
